FAERS Safety Report 10417938 (Version 1)
Quarter: 2014Q2

REPORT INFORMATION
  Report Type: Spontaneous
  Country: US (occurrence: None)
  Receive Date: 20140613
  Receipt Date: 20140613
  Transmission Date: 20141212
  Serious: Yes (Other)
  Sender: FDA-Public Use
  Company Number: PHEH2013US015097

PATIENT
  Age: 52 Year
  Sex: Female

DRUGS (1)
  1. EXFORGE HCT [Suspect]

REACTIONS (2)
  - Hypertension [None]
  - Expired product administered [None]
